FAERS Safety Report 25089529 (Version 1)
Quarter: 2025Q1

REPORT INFORMATION
  Report Type: Spontaneous
  Country: US (occurrence: US)
  Receive Date: 20250318
  Receipt Date: 20250318
  Transmission Date: 20250408
  Serious: No
  Sender: ITALFARMACO SPA
  Company Number: US-ITALFARMACO SPA-2173128

PATIENT
  Age: 22 Year
  Sex: Male
  Weight: 91.17 kg

DRUGS (1)
  1. DUVYZAT [Suspect]
     Active Substance: GIVINOSTAT
     Indication: Muscular dystrophy
     Dates: start: 20250114

REACTIONS (3)
  - Haemorrhage [Unknown]
  - Dysgeusia [Unknown]
  - Contusion [Unknown]
